FAERS Safety Report 7089024-6 (Version None)
Quarter: 2010Q4

REPORT INFORMATION
  Report Type: 
  Country: None (occurrence: None)
  Receive Date: 20101108
  Receipt Date: 20101104
  Transmission Date: 20110411
  Serious: Yes (Other)
  Sender: FDA-Public Use
  Company Number: A0890891A

PATIENT
  Age: 75 Year
  Sex: Female

DRUGS (11)
  1. VENTOLIN [Suspect]
     Dosage: 2PUFF AS REQUIRED
     Route: 055
  2. COMBIVENT [Concomitant]
  3. ADVAIR DISKUS 100/50 [Concomitant]
  4. DIGOXIN [Concomitant]
  5. FUROSEMIDE [Concomitant]
  6. METOPROLOL [Concomitant]
  7. ENALAPRIL MALEATE [Concomitant]
  8. SPIRONOLACTONE [Concomitant]
  9. HYDRALAZINE [Concomitant]
  10. TRAMADOL HCL [Concomitant]
  11. LIDODERM [Concomitant]

REACTIONS (4)
  - ASTHMA [None]
  - DYSPNOEA [None]
  - INHALATION THERAPY [None]
  - PRODUCT QUALITY ISSUE [None]
